FAERS Safety Report 10413362 (Version 1)
Quarter: 2014Q3

REPORT INFORMATION
  Report Type: Spontaneous
  Country: US (occurrence: None)
  Receive Date: 20140825
  Receipt Date: 20140825
  Transmission Date: 20150326
  Serious: Yes (Other)
  Sender: FDA-Public Use
  Company Number: 153527

PATIENT
  Age: 27 Year
  Sex: Female

DRUGS (2)
  1. DACTINOMYCIN [Suspect]
     Active Substance: DACTINOMYCIN
     Indication: HUMAN CHORIONIC GONADOTROPIN
  2. METHOTREXATE [Suspect]
     Active Substance: METHOTREXATE
     Indication: HUMAN CHORIONIC GONADOTROPIN INCREASED

REACTIONS (1)
  - Acute myeloid leukaemia [None]
